FAERS Safety Report 7403818-6 (Version None)
Quarter: 2011Q2

REPORT INFORMATION
  Report Type: 
  Country: None (occurrence: None)
  Receive Date: 20110408
  Receipt Date: 20110328
  Transmission Date: 20111010
  Serious: Yes (Other)
  Sender: FDA-Public Use
  Company Number: PHEH2007US06794

PATIENT
  Sex: Female
  Weight: 92.971 kg

DRUGS (44)
  1. FEMARA [Concomitant]
  2. PAXIL [Concomitant]
     Dosage: UNK
  3. HYDROGEN PEROXIDE MOUTH RINSE [Concomitant]
     Dosage: UNK
  4. CEFUROXIME AXETIL [Concomitant]
     Dosage: 500 MG 1 TABLET 2 TIMES DAILY
  5. AREDIA [Suspect]
     Dosage: 90 MG, UNK
     Dates: end: 20010221
  6. PROCHLORPERAZINE TAB [Concomitant]
     Dosage: 10 MG FOR NAUSEA
  7. SERTRALINE HYDROCHLORIDE [Concomitant]
     Dosage: 100 MG, 1 TABLET DAILY
  8. FEXOFENADINE [Concomitant]
     Dosage: 180 MG 1 TABLET DAILY
  9. PEPCID [Concomitant]
  10. FISH OIL [Concomitant]
  11. TURMERIC [Concomitant]
  12. OXYCODONE [Concomitant]
  13. AMOXICILLIN [Concomitant]
  14. ZOLADEX [Concomitant]
  15. LUPRON [Concomitant]
     Dosage: UNK
     Dates: start: 20050101
  16. ANZEMET [Concomitant]
     Dosage: UNK
  17. DEXAMETHASONE [Concomitant]
  18. CLINDAMYCIN [Concomitant]
     Dosage: UNK
     Route: 048
  19. LORTAB [Concomitant]
     Dosage: UNK
     Route: 048
  20. SIMVASTATIN [Concomitant]
  21. ZOMETA [Suspect]
     Indication: METASTASES TO BONE
     Dosage: 4 MG, UNK
     Dates: start: 20020304, end: 20040901
  22. TAXOL [Concomitant]
     Dosage: UNK
  23. ASPIRIN [Concomitant]
  24. ADRIAMYCIN PFS [Concomitant]
  25. PRILOSEC [Concomitant]
     Dosage: 20 MG 1 TABLET, 2 TIMES DAILY
  26. ZOLOFT [Concomitant]
     Dosage: UNK
     Route: 048
  27. MULTIVITAMIN ^LAPPE^ [Concomitant]
  28. DEPO-MEDROL [Concomitant]
     Dosage: 120 MG
  29. TAXOTERE [Concomitant]
     Dosage: UNK
  30. METHOCARBAMOL [Concomitant]
     Dosage: 750 MG FOR MUSCLE SPASMS
  31. ETHYOL [Concomitant]
  32. HYDROCODONE BITARTRATE AND ACETAMINOPHEN [Concomitant]
  33. PENICILLIN VK [Concomitant]
     Dosage: 500 MG, UNK
  34. CALCIUM [Concomitant]
  35. CYTOXAN [Concomitant]
  36. LIPITOR [Concomitant]
     Dosage: UNK
  37. ROBAXIN [Concomitant]
     Dosage: UNK
     Route: 048
  38. ALPHA LIPOIC ACID [Concomitant]
  39. TRAZODONE HCL [Concomitant]
  40. RADIATION THERAPY [Concomitant]
  41. MAGACE [Concomitant]
     Dosage: UNK
  42. MAGNESIUM [Concomitant]
  43. VITAMIN D [Concomitant]
  44. FOLATE SODIUM [Concomitant]

REACTIONS (49)
  - PERICARDIAL EFFUSION [None]
  - METASTASES TO LIVER [None]
  - GENERAL PHYSICAL HEALTH DETERIORATION [None]
  - COMPRESSION FRACTURE [None]
  - TENDON INJURY [None]
  - THYROID CYST [None]
  - MYOPIA [None]
  - OSTEONECROSIS OF JAW [None]
  - ANXIETY [None]
  - SPONDYLOLISTHESIS [None]
  - DIVERTICULUM [None]
  - INTERVERTEBRAL DISC DEGENERATION [None]
  - IRON DEFICIENCY ANAEMIA [None]
  - JOINT INJURY [None]
  - ANAEMIA [None]
  - CALCULUS URETERIC [None]
  - PLEURAL EFFUSION [None]
  - ATELECTASIS [None]
  - SEXUALLY TRANSMITTED DISEASE [None]
  - PEPTIC ULCER [None]
  - RETINAL PIGMENT EPITHELIOPATHY [None]
  - CONJUNCTIVITIS [None]
  - RIB FRACTURE [None]
  - DEPRESSION [None]
  - OSTEOSARCOMA METASTATIC [None]
  - NOCTURIA [None]
  - BRONCHITIS [None]
  - CATARACT [None]
  - ADNEXA UTERI CYST [None]
  - PAIN [None]
  - METASTASES TO SPINE [None]
  - HIATUS HERNIA [None]
  - NEPHROLITHIASIS [None]
  - DEEP VEIN THROMBOSIS [None]
  - SINUSITIS [None]
  - CARDIAC MURMUR [None]
  - TOOTH LOSS [None]
  - RETINAL MELANOMA [None]
  - CERVICAL DYSPLASIA [None]
  - ABDOMINAL HERNIA [None]
  - HYDRONEPHROSIS [None]
  - DRY EYE [None]
  - HEADACHE [None]
  - ORAL DISORDER [None]
  - INJURY [None]
  - BACK PAIN [None]
  - INTERVERTEBRAL DISC PROTRUSION [None]
  - HYDROURETER [None]
  - LUNG NEOPLASM [None]
